FAERS Safety Report 6612553-3 (Version None)
Quarter: 2010Q1

REPORT INFORMATION
  Report Type: 
  Country: None (occurrence: None)
  Receive Date: 20100223
  Receipt Date: 20100201
  Transmission Date: 20100710
  Serious: Yes (Hospitalization, Other)
  Sender: FDA-Public Use
  Company Number: AUR-APL-2010-00450

PATIENT
  Age: 51 Year
  Sex: Male

DRUGS (4)
  1. SIMVASTATIN [Suspect]
  2. ACETYLSALICYLIC ACID TABLET (TROMBYL) [Suspect]
  3. ENALAPRIL MALEATE [Suspect]
     Indication: HYPERTENSION
     Dates: end: 20090101
  4. ADALAT [Concomitant]

REACTIONS (6)
  - ANGIOEDEMA [None]
  - PARAESTHESIA [None]
  - PARAESTHESIA ORAL [None]
  - PENILE SWELLING [None]
  - SCROTAL OEDEMA [None]
  - TONGUE OEDEMA [None]
